FAERS Safety Report 22219706 (Version 2)
Quarter: 2023Q2

REPORT INFORMATION
  Report Type: Spontaneous
  Country: BR (occurrence: BR)
  Receive Date: 20230417
  Receipt Date: 20230516
  Transmission Date: 20230722
  Serious: Yes (Other)
  Sender: FDA-Public Use
  Company Number: BR-002147023-NVSC2023BR076205

PATIENT
  Sex: Male

DRUGS (1)
  1. COSENTYX [Suspect]
     Active Substance: SECUKINUMAB
     Indication: Product used for unknown indication
     Dosage: 150 MILLIGRAM PER MILLILITRE (FOR ALMOST A YEAR)
     Route: 065
     Dates: end: 202212

REACTIONS (2)
  - Chest wall haematoma [Not Recovered/Not Resolved]
  - Skin lesion [Not Recovered/Not Resolved]
